FAERS Safety Report 7099587-2 (Version None)
Quarter: 2010Q4

REPORT INFORMATION
  Report Type: 
  Country: None (occurrence: None)
  Receive Date: 20101112
  Receipt Date: 20081111
  Transmission Date: 20110411
  Serious: No
  Sender: FDA-Public Use
  Company Number: US-KINGPHARMUSA00001-K200801298

PATIENT
  Sex: Male
  Weight: 80.726 kg

DRUGS (4)
  1. LEVOXYL [Suspect]
     Indication: THYROID DISORDER
     Dosage: UNK
     Route: 048
     Dates: start: 20030101
  2. ALOE VERA [Concomitant]
     Indication: SKIN DISORDER
     Dosage: UNK
     Route: 061
  3. ASPIRIN [Concomitant]
     Dosage: UNK
     Route: 048
  4. HYDROCHLOROTHIAZIDE [Concomitant]
     Indication: HYPERTENSION
     Dosage: 1/2 TAB 25 MG, QMON

REACTIONS (6)
  - BALANCE DISORDER [None]
  - EPISTAXIS [None]
  - FALL [None]
  - MOBILITY DECREASED [None]
  - NASAL DISCOMFORT [None]
  - SNEEZING [None]
